FAERS Safety Report 16808155 (Version 1)
Quarter: 2019Q3

REPORT INFORMATION
  Report Type: Spontaneous
  Country: CN (occurrence: CN)
  Receive Date: 20190916
  Receipt Date: 20190916
  Transmission Date: 20191005
  Serious: Yes (Hospitalization)
  Sender: FDA-Public Use
  Company Number: CN-ASTRAZENECA-2019SE84521

PATIENT
  Age: 20621 Day
  Sex: Male
  Weight: 65.4 kg

DRUGS (1)
  1. BUDESONIDE. [Suspect]
     Active Substance: BUDESONIDE
     Indication: BRONCHIAL OBSTRUCTION
     Route: 055
     Dates: start: 20190524, end: 20190524

REACTIONS (4)
  - Drug eruption [Recovered/Resolved]
  - Abdominal discomfort [Unknown]
  - Herpes dermatitis [Recovered/Resolved]
  - Pruritus [Unknown]

NARRATIVE: CASE EVENT DATE: 20190524
